FAERS Safety Report 8770744 (Version 1)
Quarter: 2012Q4

REPORT INFORMATION
  Report Type: 
  Country: US (occurrence: US)
  Receive Date: 20120906
  Receipt Date: 20120906
  Transmission Date: 20130627
  Serious: Yes (Hospitalization)
  Sender: FDA-Public Use
  Company Number: US-PFIZER INC-2012218915

PATIENT
  Age: 3 None
  Sex: Female
  Weight: 56.69 kg

DRUGS (3)
  1. EFFEXOR [Suspect]
     Dosage: UNK
     Dates: start: 1980
  2. EFFEXOR [Suspect]
     Dosage: UNK
     Dates: start: 20120831
  3. PROZAC [Suspect]
     Dosage: UNK
     Dates: start: 1980

REACTIONS (2)
  - Depression [Unknown]
  - Narcolepsy [Unknown]
